FAERS Safety Report 5310246-6 (Version None)
Quarter: 2007Q2

REPORT INFORMATION
  Report Type: 
  Country: None (occurrence: None)
  Receive Date: 20070427
  Receipt Date: 20070424
  Transmission Date: 20071010
  Serious: Yes (Other)
  Sender: FDA-Public Use
  Company Number: FR-BRISTOL-MYERS SQUIBB COMPANY-13717525

PATIENT
  Age: 38 Year
  Sex: Female
  Weight: 62 kg

DRUGS (5)
  1. REYATAZ [Suspect]
     Indication: HIV INFECTION
     Route: 048
     Dates: start: 20040426
  2. CRIXIVAN [Concomitant]
     Dates: start: 20030301
  3. NORVIR [Concomitant]
     Dates: start: 20020601
  4. ZIAGEN [Concomitant]
     Dates: start: 20020601
  5. VIDEX [Concomitant]
     Dates: start: 20020601

REACTIONS (2)
  - NEPHROLITHIASIS [None]
  - RENAL COLIC [None]
